FAERS Safety Report 21084861 (Version 1)
Quarter: 2022Q3

REPORT INFORMATION
  Report Type: Spontaneous
  Country: TW (occurrence: TW)
  Receive Date: 20220714
  Receipt Date: 20220714
  Transmission Date: 20221027
  Serious: Yes (Hospitalization)
  Sender: FDA-Public Use
  Company Number: TW-SA-2022SA270421

PATIENT
  Age: 72 Year
  Sex: Female
  Weight: 42.5 kg

DRUGS (13)
  1. DOCETAXEL [Suspect]
     Active Substance: DOCETAXEL
     Indication: Neoplasm
     Dosage: 56 MG/M2,1 IN 3 WK
     Route: 042
     Dates: start: 20220503, end: 20220524
  2. MIRZOTAMAB CLEZUTOCLAX [Suspect]
     Active Substance: MIRZOTAMAB CLEZUTOCLAX
     Indication: Neoplasm
     Dosage: 16 MG/KG,1 IN 3 WK
     Route: 042
     Dates: start: 20220503, end: 20220524
  3. MEPTIN MINITAB [Concomitant]
     Indication: Productive cough
     Route: 048
  4. PROCATEROL HYDROCHLORIDE HEMIHYDRATE [Concomitant]
     Active Substance: PROCATEROL HYDROCHLORIDE HEMIHYDRATE
     Indication: Anxiety
     Dosage: 50 MCG (25 MCG,2 IN 1 D)
     Dates: start: 20220425
  5. MOMETASONE FUROATE [Concomitant]
     Active Substance: MOMETASONE FUROATE
     Indication: Productive cough
     Dosage: 100 MCG (50 MCG,2 IN 1 D)
     Route: 045
     Dates: start: 20220415
  6. ACETYLCYSTEINE [Concomitant]
     Active Substance: ACETYLCYSTEINE
     Indication: Productive cough
     Dosage: 1200 MG
     Route: 048
     Dates: start: 20220506
  7. FILGRASTIM [Concomitant]
     Active Substance: FILGRASTIM
     Indication: Neutropenia
     Dosage: 300 UNK, QD
     Route: 058
     Dates: start: 20220504, end: 20220506
  8. FILGRASTIM [Concomitant]
     Active Substance: FILGRASTIM
     Dosage: 300 UNK, QD
     Route: 058
     Dates: start: 20220510, end: 20220511
  9. FILGRASTIM [Concomitant]
     Active Substance: FILGRASTIM
     Dosage: 300 UNK, QD
     Route: 058
     Dates: start: 20220525
  10. ACETAMINOPHEN [Concomitant]
     Active Substance: ACETAMINOPHEN
     Indication: Back pain
     Dosage: 500 MG
     Route: 048
     Dates: start: 20220504
  11. ESOMEPRAZOLE [Concomitant]
     Active Substance: ESOMEPRAZOLE
     Indication: Abdominal discomfort
     Dosage: UNK
     Route: 048
     Dates: start: 20220415, end: 20220428
  12. ESOMEPRAZOLE [Concomitant]
     Active Substance: ESOMEPRAZOLE
     Indication: Prophylaxis against gastrointestinal ulcer
     Dosage: 40 MG, BID, STAT
     Route: 043
     Dates: start: 20220507
  13. PROPRANOLOL [Concomitant]
     Active Substance: PROPRANOLOL HYDROCHLORIDE
     Indication: Mitral valve prolapse
     Dosage: 10 MG, BID
     Route: 048
     Dates: start: 20220520

REACTIONS (1)
  - Paraesthesia [Not Recovered/Not Resolved]

NARRATIVE: CASE EVENT DATE: 20220608
